FAERS Safety Report 6403617-8 (Version None)
Quarter: 2009Q4

REPORT INFORMATION
  Report Type: 
  Country: None (occurrence: None)
  Receive Date: 20091016
  Receipt Date: 20091003
  Transmission Date: 20100525
  Serious: No
  Sender: FDA-Public Use
  Company Number: US-B.I. PHARMACEUTICALS,INC./RIDGEFIELD-2009-BP-12031BP

PATIENT
  Sex: Female

DRUGS (1)
  1. ZANTAC 150 [Suspect]
     Dosage: TOOK 5 TABLETS AT ONCE
     Route: 048

REACTIONS (1)
  - INCORRECT DOSE ADMINISTERED [None]
